FAERS Safety Report 4434182-2 (Version None)
Quarter: 2004Q3

REPORT INFORMATION
  Report Type: 
  Country: None (occurrence: None)
  Receive Date: 20040726
  Receipt Date: 20040524
  Transmission Date: 20050211
  Serious: No
  Sender: FDA-Public Use
  Company Number: USA040156682

PATIENT
  Age: 65 Year
  Sex: Female

DRUGS (7)
  1. FORTEO [Suspect]
     Indication: OSTEOPOROSIS
     Dosage: 20 UG 1 DAY
     Dates: start: 20031101
  2. TRAZADONE (TRAZODONE) [Concomitant]
  3. XANAX [Concomitant]
  4. MULTIVITAMIN [Concomitant]
  5. ATROVENT [Concomitant]
  6. ALBUTEROL [Concomitant]
  7. CALCIUM [Concomitant]

REACTIONS (6)
  - ANGIOGRAM [None]
  - CHEST DISCOMFORT [None]
  - FATIGUE [None]
  - HYPERSOMNIA [None]
  - RASH [None]
  - SKIN HYPOPIGMENTATION [None]
